FAERS Safety Report 24561446 (Version 2)
Quarter: 2024Q4

REPORT INFORMATION
  Report Type: Spontaneous
  Country: US (occurrence: US)
  Receive Date: 20241029
  Receipt Date: 20241106
  Transmission Date: 20250114
  Serious: Yes (Hospitalization, Other)
  Sender: GENMAB
  Company Number: US-GENMAB-2024-03874

PATIENT
  Sex: Female

DRUGS (6)
  1. EPKINLY [Suspect]
     Active Substance: EPCORITAMAB-BYSP
     Indication: Diffuse large B-cell lymphoma
     Dosage: 0.16 MILLIGRAM, CYCLE 1 (DAY 1)
     Route: 065
     Dates: start: 20241006
  2. EPKINLY [Suspect]
     Active Substance: EPCORITAMAB-BYSP
     Dosage: 0.8 MILLIGRAM (DAY 4 STEP-UP DOSING)
     Route: 065
     Dates: start: 202410
  3. EPKINLY [Suspect]
     Active Substance: EPCORITAMAB-BYSP
     Dosage: 48 MILLIGRAM (DAY 7 WAS GIVEN THE FIRST FULL DOSE)
     Route: 065
     Dates: start: 202410
  4. EPKINLY [Suspect]
     Active Substance: EPCORITAMAB-BYSP
     Dosage: 48 MILLIGRAM (FULL DOSE ON DAY 21)
     Route: 065
     Dates: start: 202410
  5. GEMCITABINE HYDROCHLORIDE\OXALIPLATIN [Concomitant]
     Active Substance: GEMCITABINE HYDROCHLORIDE\OXALIPLATIN
     Dosage: UNK
     Route: 065
     Dates: start: 202410
  6. KEPPRA [Concomitant]
     Active Substance: LEVETIRACETAM
     Indication: Prophylaxis
     Dosage: UNK, CYCLE 1
     Route: 065

REACTIONS (5)
  - Metastases to central nervous system [Unknown]
  - Richter^s syndrome [Unknown]
  - Tremor [Unknown]
  - Seizure [Unknown]
  - Inappropriate schedule of product administration [Unknown]

NARRATIVE: CASE EVENT DATE: 20241001
